FAERS Safety Report 7688712-8 (Version None)
Quarter: 2011Q3

REPORT INFORMATION
  Report Type: 
  Country: None (occurrence: None)
  Receive Date: 20110817
  Receipt Date: 20110707
  Transmission Date: 20111222
  Serious: Yes (Hospitalization, Other)
  Sender: FDA-Public Use
  Company Number: JP-GLAXOSMITHKLINE-B0731937A

PATIENT
  Sex: Male
  Weight: 69 kg

DRUGS (5)
  1. WARFARIN SODIUM [Suspect]
     Indication: PULMONARY EMBOLISM
     Dosage: 3MG PER DAY
     Route: 048
     Dates: start: 20110622, end: 20110702
  2. NITRAZEPAM [Concomitant]
     Route: 048
  3. BICARBONATE [Concomitant]
     Route: 042
  4. ARIXTRA [Suspect]
     Indication: PULMONARY EMBOLISM
     Dosage: 7.5MG PER DAY
     Route: 058
     Dates: start: 20110622, end: 20110702
  5. RABEPRAZOLE SODIUM [Concomitant]
     Route: 048

REACTIONS (4)
  - ABDOMINAL TENDERNESS [None]
  - HEPATIC HAEMORRHAGE [None]
  - PAINFUL RESPIRATION [None]
  - COLD SWEAT [None]
